FAERS Safety Report 9760799 (Version 1)
Quarter: 2013Q4

REPORT INFORMATION
  Report Type: Spontaneous
  Country: US (occurrence: US)
  Receive Date: 20131216
  Receipt Date: 20131216
  Transmission Date: 20140711
  Serious: No
  Sender: FDA-Public Use
  Company Number: US-BIOGENIDEC-2013BI106216

PATIENT
  Sex: Female

DRUGS (11)
  1. TECFIDERA [Suspect]
     Indication: PRODUCT USED FOR UNKNOWN INDICATION
     Route: 048
  2. TOFRANIL [Concomitant]
  3. CLONAZEPAM [Concomitant]
  4. LORAZEPAM [Concomitant]
  5. TRAZODONE [Concomitant]
  6. TIZANIDINE [Concomitant]
  7. IRON [Concomitant]
  8. CALCIUM [Concomitant]
  9. VITAMIN D [Concomitant]
  10. ALLEGRA [Concomitant]
  11. CLARITIN [Concomitant]

REACTIONS (4)
  - Heart rate increased [Unknown]
  - Stress [Unknown]
  - Memory impairment [Unknown]
  - Compulsions [Unknown]
